FAERS Safety Report 23626144 (Version 1)
Quarter: 2024Q1

REPORT INFORMATION
  Report Type: Spontaneous
  Country: US (occurrence: None)
  Receive Date: 20240312
  Receipt Date: 20240312
  Transmission Date: 20240410
  Serious: Yes (Hospitalization)
  Sender: FDA-Public Use
  Company Number: None

PATIENT
  Age: 76 Year
  Sex: Female

DRUGS (3)
  1. ALBUTEROL SULFATE [Suspect]
     Active Substance: ALBUTEROL SULFATE
     Indication: Asthma
     Dosage: 1 VIAL AS NEEDED NEBULIZATION?
     Route: 050
     Dates: start: 202402
  2. ALBUTEROL SULF INH SOLN [Concomitant]
  3. FASENRA PEN AUTOINJECTOR [Concomitant]

REACTIONS (3)
  - Therapy interrupted [None]
  - Heart rate increased [None]
  - Pneumonia pseudomonal [None]

NARRATIVE: CASE EVENT DATE: 20240305
